FAERS Safety Report 25529693 (Version 1)
Quarter: 2025Q3

REPORT INFORMATION
  Report Type: Spontaneous
  Country: CN (occurrence: CN)
  Receive Date: 20250708
  Receipt Date: 20250708
  Transmission Date: 20251020
  Serious: Yes (Hospitalization)
  Sender: CHEPLAPHARM
  Company Number: CN-CHEPLA-2025008191

PATIENT
  Age: 14 Year
  Sex: Male

DRUGS (20)
  1. OLANZAPINE [Suspect]
     Active Substance: OLANZAPINE
     Indication: Insomnia
     Dosage: THE OLANZAPINE DOSAGE WAS DECREASED FROM 15 MG/D TO 10 MG/DAY ON 16 JANUARY 2024
     Route: 048
     Dates: start: 20240116
  2. OLANZAPINE [Suspect]
     Active Substance: OLANZAPINE
     Indication: Schizophreniform disorder
     Dosage: THE OLANZAPINE DOSAGE WAS DECREASED FROM 15 MG/D TO 10 MG/DAY ON 16 JANUARY 2024
     Route: 048
     Dates: start: 20240116
  3. OLANZAPINE [Suspect]
     Active Substance: OLANZAPINE
     Indication: Psychotic symptom
     Dosage: THE OLANZAPINE DOSAGE WAS DECREASED FROM 15 MG/D TO 10 MG/DAY ON 16 JANUARY 2024
     Route: 048
     Dates: start: 20240116
  4. OLANZAPINE [Suspect]
     Active Substance: OLANZAPINE
     Indication: Insomnia
     Dosage: OLANZAPINE WAS REDUCED FROM 10 MG TO 5 MG ON 1 APRIL 2024?DAILY DOSE: 5 MILLIGRAM
     Route: 048
     Dates: start: 20240401
  5. OLANZAPINE [Suspect]
     Active Substance: OLANZAPINE
     Indication: Schizophreniform disorder
     Dosage: OLANZAPINE WAS REDUCED FROM 10 MG TO 5 MG ON 1 APRIL 2024?DAILY DOSE: 5 MILLIGRAM
     Route: 048
     Dates: start: 20240401
  6. OLANZAPINE [Suspect]
     Active Substance: OLANZAPINE
     Indication: Psychotic symptom
     Dosage: OLANZAPINE WAS REDUCED FROM 10 MG TO 5 MG ON 1 APRIL 2024?DAILY DOSE: 5 MILLIGRAM
     Route: 048
     Dates: start: 20240401
  7. OLANZAPINE [Suspect]
     Active Substance: OLANZAPINE
     Indication: Insomnia
     Dosage: DAYS 1?27?DAILY DOSE: 10 MILLIGRAM
     Route: 048
  8. OLANZAPINE [Suspect]
     Active Substance: OLANZAPINE
     Indication: Schizophreniform disorder
     Dosage: DAYS 1?27?DAILY DOSE: 10 MILLIGRAM
     Route: 048
  9. OLANZAPINE [Suspect]
     Active Substance: OLANZAPINE
     Indication: Psychotic symptom
     Dosage: DAYS 1?27?DAILY DOSE: 10 MILLIGRAM
     Route: 048
  10. OLANZAPINE [Suspect]
     Active Substance: OLANZAPINE
     Indication: Insomnia
     Dosage: DOSAGE WAS INCREASED FROM 10 MG/D TO 15 MG/D.?DAILY DOSE: 15 MILLIGRAM
     Route: 048
  11. OLANZAPINE [Suspect]
     Active Substance: OLANZAPINE
     Indication: Schizophreniform disorder
     Dosage: DOSAGE WAS INCREASED FROM 10 MG/D TO 15 MG/D.?DAILY DOSE: 15 MILLIGRAM
     Route: 048
  12. OLANZAPINE [Suspect]
     Active Substance: OLANZAPINE
     Indication: Psychotic symptom
     Dosage: DOSAGE WAS INCREASED FROM 10 MG/D TO 15 MG/D.?DAILY DOSE: 15 MILLIGRAM
     Route: 048
  13. LORAZEPAM [Suspect]
     Active Substance: LORAZEPAM
     Indication: Psychotic symptom
  14. LORAZEPAM [Suspect]
     Active Substance: LORAZEPAM
     Indication: Insomnia
  15. VALPROATE SODIUM [Suspect]
     Active Substance: VALPROATE SODIUM
     Indication: Mood swings
     Dosage: EXTENDED-RELEASE TABLET?DAILY DOSE: 1 GRAM
     Dates: start: 20231222
  16. VALPROATE SODIUM [Suspect]
     Active Substance: VALPROATE SODIUM
     Indication: Mood swings
     Dosage: ADJUST THE DAILY DOSE OF VALPROIC ACID SUSTAINED-RELEASE TABLETS TO 0.5 G/DAY ON 31 JANUARY 2024
     Dates: start: 20240131
  17. VALPROATE SODIUM [Suspect]
     Active Substance: VALPROATE SODIUM
     Indication: Mood swings
     Dosage: EXTENDED-RELEASE TABLET?DAILY DOSE: 0.5 GRAM
  18. ACETAMINOPHEN [Concomitant]
     Active Substance: ACETAMINOPHEN
  19. AMANTADINE HYDROCHLORIDE [Concomitant]
     Active Substance: AMANTADINE HYDROCHLORIDE
  20. VITAMIN D [Concomitant]
     Active Substance: VITAMIN D NOS
     Indication: Vitamin D decreased
     Dosage: DAILY DOSE OF 800 IU OF VITAMIN D IN THE FORM OF VITAMIN D DROPS

REACTIONS (5)
  - Pyrexia [Recovered/Resolved]
  - Mania [Unknown]
  - Pyrexia [Recovered/Resolved]
  - Somnolence [Unknown]
  - Off label use [Not Recovered/Not Resolved]

NARRATIVE: CASE EVENT DATE: 20230101
